FAERS Safety Report 4498183-0 (Version None)
Quarter: 2004Q3

REPORT INFORMATION
  Report Type: 
  Country: None (occurrence: None)
  Receive Date: 20040927
  Receipt Date: 20040604
  Transmission Date: 20050211
  Serious: No
  Sender: FDA-Public Use
  Company Number: USA040669366

PATIENT
  Age: 13 Year
  Sex: Female
  Weight: 45 kg

DRUGS (4)
  1. STRATTERA [Suspect]
     Indication: ATTENTION DEFICIT/HYPERACTIVITY DISORDER
     Dosage: 80 MG DAY
     Dates: start: 20021201, end: 20040528
  2. MULTIVITAMIN [Concomitant]
  3. ZOLOFT [Suspect]
  4. PROZAC [Concomitant]

REACTIONS (12)
  - ABNORMAL BEHAVIOUR [None]
  - AGGRESSION [None]
  - ANGER [None]
  - BACK PAIN [None]
  - DEPRESSION [None]
  - DISTURBANCE IN SOCIAL BEHAVIOUR [None]
  - HYPERTONIA [None]
  - LOWER LIMB DEFORMITY [None]
  - MOOD SWINGS [None]
  - PELVIC DEFORMITY [None]
  - PRESCRIBED OVERDOSE [None]
  - SCOLIOSIS [None]
